FAERS Safety Report 7408404-X (Version None)
Quarter: 2011Q2

REPORT INFORMATION
  Report Type: 
  Country: None (occurrence: None)
  Receive Date: 20110412
  Receipt Date: 20110405
  Transmission Date: 20111010
  Serious: Yes (Other)
  Sender: FDA-Public Use
  Company Number: US-JNJFOC-20110305331

PATIENT
  Sex: Female

DRUGS (4)
  1. LEVAQUIN [Suspect]
     Indication: ASTHMA
     Route: 048
  2. LEVAQUIN [Suspect]
     Indication: LUNG INFECTION
     Route: 048
  3. PREDNISONE [Suspect]
     Indication: ASTHMA
     Route: 065
  4. LEVOFLOXACIN [Suspect]
     Indication: PRODUCT USED FOR UNKNOWN INDICATION
     Route: 065

REACTIONS (4)
  - TENDONITIS [None]
  - ROTATOR CUFF SYNDROME [None]
  - TENOSYNOVITIS [None]
  - TENOSYNOVITIS STENOSANS [None]
